FAERS Safety Report 7326583-X (Version None)
Quarter: 2011Q1

REPORT INFORMATION
  Report Type: 
  Country: None (occurrence: None)
  Receive Date: 20110302
  Receipt Date: 20110225
  Transmission Date: 20110831
  Serious: Yes (Hospitalization, Disabling, Other)
  Sender: FDA-Public Use
  Company Number: US-MERCK-1007USA03942

PATIENT
  Age: 54 Year
  Sex: Female

DRUGS (3)
  1. FOSAMAX [Suspect]
     Indication: OSTEOPOROSIS PROPHYLAXIS
     Route: 048
     Dates: start: 20000101, end: 20090701
  2. FOSAMAX PLUS D [Suspect]
     Indication: OSTEOPOROSIS PROPHYLAXIS
     Route: 048
  3. ACTONEL [Suspect]
     Route: 065
     Dates: start: 20080401, end: 20080601

REACTIONS (17)
  - BONE DISORDER [None]
  - LOW TURNOVER OSTEOPATHY [None]
  - DEPRESSION [None]
  - FEMUR FRACTURE [None]
  - STAPHYLOCOCCAL INFECTION [None]
  - GASTROOESOPHAGEAL REFLUX DISEASE [None]
  - STREPTOCOCCAL INFECTION [None]
  - HYPERTENSION [None]
  - FIBROMYALGIA [None]
  - SPINAL DISORDER [None]
  - ANXIETY [None]
  - HYPERLIPIDAEMIA [None]
  - FRACTURE NONUNION [None]
  - STRESS FRACTURE [None]
  - OSTEOPOROSIS [None]
  - HIATUS HERNIA [None]
  - ENTEROCOCCAL INFECTION [None]
